FAERS Safety Report 9186895 (Version 1)
Quarter: 2013Q1

REPORT INFORMATION
  Report Type: Spontaneous
  Country: JP (occurrence: JP)
  Receive Date: 20130325
  Receipt Date: 20130325
  Transmission Date: 20140127
  Serious: Yes (Other)
  Sender: FDA-Public Use
  Company Number: JP-SANOFI-AVENTIS-2013SA027169

PATIENT
  Age: 30 Year
  Sex: Female

DRUGS (1)
  1. DELLEGRA [Suspect]
     Indication: NASAL CONGESTION
     Route: 048
     Dates: start: 20130306, end: 20130308

REACTIONS (2)
  - Haemorrhage subcutaneous [Unknown]
  - Asthma [Unknown]
